FAERS Safety Report 21033899 (Version 2)
Quarter: 2022Q4

REPORT INFORMATION
  Report Type: Spontaneous
  Country: US (occurrence: US)
  Receive Date: 20220701
  Receipt Date: 20221025
  Transmission Date: 20230113
  Serious: No
  Sender: FDA-Public Use
  Company Number: US-BRISTOL-MYERS SQUIBB COMPANY-2022-067471

PATIENT
  Age: 76 Year
  Sex: Female

DRUGS (2)
  1. ORENCIA [Suspect]
     Active Substance: ABATACEPT
     Indication: Rheumatoid arthritis
     Dosage: ONGOING
     Route: 058
     Dates: start: 20220606
  2. ORENCIA [Suspect]
     Active Substance: ABATACEPT
     Dosage: ONGOING
     Route: 058
     Dates: start: 20220606

REACTIONS (2)
  - Product quality issue [Unknown]
  - Drug ineffective [Unknown]
